FAERS Safety Report 9013532 (Version 1)
Quarter: 2012Q4

REPORT INFORMATION
  Report Type: Spontaneous
  Country: CN (occurrence: None)
  Receive Date: 20121231
  Receipt Date: 20121231
  Transmission Date: 20130627
  Serious: Yes (Other)
  Sender: FDA-Public Use
  Company Number: VAL_01215_2012

PATIENT
  Sex: Female
  Weight: 56 kg

DRUGS (1)
  1. LOTENSIN /00909102/ (LOTENSIN-BENAZEPRIL HYDROCHLORIDE) (NOT SPECIFIED) [Suspect]
     Indication: HYPERTENSION
     Route: 048
     Dates: start: 20090808, end: 20090809

REACTIONS (4)
  - Pharyngeal oedema [None]
  - Oropharyngeal pain [None]
  - Dysphagia [None]
  - Cough [None]
